FAERS Safety Report 5132608-2 (Version None)
Quarter: 2006Q4

REPORT INFORMATION
  Report Type: 
  Country: None (occurrence: None)
  Receive Date: 20061023
  Receipt Date: 20061012
  Transmission Date: 20070319
  Serious: Yes (Other)
  Sender: FDA-Public Use
  Company Number: AR-ROCHE-467031

PATIENT
  Age: 54 Year
  Sex: Female

DRUGS (3)
  1. PEG-INTERFERON A-2A (RO 25-8310) [Suspect]
     Route: 065
  2. RIBAVIRIN [Suspect]
     Route: 065
  3. NIFEDIPINE [Concomitant]

REACTIONS (3)
  - BLOOD CORTICOTROPHIN DECREASED [None]
  - HYPOPHYSITIS [None]
  - HYPOTHYROIDISM [None]
